FAERS Safety Report 21166445 (Version 3)
Quarter: 2022Q3

REPORT INFORMATION
  Report Type: Spontaneous
  Country: US (occurrence: US)
  Receive Date: 20220803
  Receipt Date: 20220907
  Transmission Date: 20221027
  Serious: Yes (Life-Threatening, Hospitalization, Other)
  Sender: FDA-Public Use
  Company Number: US-MLMSERVICE-20220722-3691306-1

PATIENT
  Age: 52 Year
  Sex: Male

DRUGS (5)
  1. METHYLPREDNISOLONE ACETATE [Suspect]
     Active Substance: METHYLPREDNISOLONE ACETATE
     Indication: Sarcoidosis
     Dosage: UNK, HIGH-DOSE
     Route: 051
     Dates: start: 202006
  2. PREDNISONE [Suspect]
     Active Substance: PREDNISONE
     Indication: Sarcoidosis
     Dosage: 10 MG, DAILY (CHRONIC LOW-DOSE FROM 2-3 YEARS)
     Route: 048
     Dates: end: 2020
  3. PREDNISONE [Suspect]
     Active Substance: PREDNISONE
     Dosage: UNK, DOSE TAPER
     Route: 048
     Dates: start: 2020
  4. AMOXICILLIN\CLAVULANIC ACID [Concomitant]
     Active Substance: AMOXICILLIN\CLAVULANIC ACID
     Indication: Sarcoidosis
     Dosage: UNK
  5. AMOXICILLIN\CLAVULANIC ACID [Concomitant]
     Active Substance: AMOXICILLIN\CLAVULANIC ACID
     Indication: Pneumonia

REACTIONS (7)
  - Pulmonary blastomycosis [Recovering/Resolving]
  - Osteomyelitis blastomyces [Recovering/Resolving]
  - Blastomycosis [Recovering/Resolving]
  - Disseminated blastomycosis [Recovering/Resolving]
  - Infection [Recovering/Resolving]
  - Encephalopathy [Unknown]
  - Renal impairment [Unknown]

NARRATIVE: CASE EVENT DATE: 20200101
